FAERS Safety Report 21838265 (Version 1)
Quarter: 2023Q1

REPORT INFORMATION
  Report Type: Spontaneous
  Country: US (occurrence: None)
  Receive Date: 20230107
  Receipt Date: 20230107
  Transmission Date: 20230417
  Serious: Yes (Life-Threatening)
  Sender: FDA-Public Use
  Company Number: None

PATIENT
  Age: 69 Year
  Sex: Female
  Weight: 89.6 kg

DRUGS (1)
  1. PROPOFOL [Suspect]
     Active Substance: PROPOFOL

REACTIONS (5)
  - Bradycardia [None]
  - Melaena [None]
  - Mean arterial pressure decreased [None]
  - Pulseless electrical activity [None]
  - Resuscitation [None]

NARRATIVE: CASE EVENT DATE: 20230107
